FAERS Safety Report 20402311 (Version 2)
Quarter: 2022Q1

REPORT INFORMATION
  Report Type: Spontaneous
  Country: US (occurrence: US)
  Receive Date: 20220131
  Receipt Date: 20220201
  Transmission Date: 20220423
  Serious: No
  Sender: FDA-Public Use
  Company Number: US-ABBVIE-21K-163-4168512-00

PATIENT
  Age: 86 Year
  Sex: Male
  Weight: 81.720 kg

DRUGS (14)
  1. HUMIRA [Suspect]
     Active Substance: ADALIMUMAB
     Indication: Rheumatoid arthritis
     Route: 058
     Dates: start: 20210210
  2. HUMIRA [Suspect]
     Active Substance: ADALIMUMAB
     Indication: Psoriatic arthropathy
  3. MODERNA COVID-19 VACCINE [Concomitant]
     Active Substance: ELASOMERAN
     Indication: COVID-19 immunisation
     Dosage: 1ST DOSE
     Route: 030
  4. MODERNA COVID-19 VACCINE [Concomitant]
     Active Substance: ELASOMERAN
     Dosage: 2ND DOSE
     Route: 030
     Dates: start: 2021, end: 2021
  5. ATORVASTATIN [Concomitant]
     Active Substance: ATORVASTATIN
     Indication: Blood cholesterol
     Dosage: 20 MILLIGRAMS
  6. TAMSULOSIN [Concomitant]
     Active Substance: TAMSULOSIN
     Indication: Product used for unknown indication
  7. METOPROLOL [Concomitant]
     Active Substance: METOPROLOL
     Indication: Hypertension
  8. LISINOPRIL [Concomitant]
     Active Substance: LISINOPRIL
     Indication: Hypertension
  9. PANTOPRAZOLE [Concomitant]
     Active Substance: PANTOPRAZOLE
     Indication: Gastrooesophageal reflux disease
  10. FOLIC ACID [Concomitant]
     Active Substance: FOLIC ACID
     Indication: Product used for unknown indication
  11. METHOTREXATE [Concomitant]
     Active Substance: METHOTREXATE
     Indication: Product used for unknown indication
  12. SULFASALAZINE [Concomitant]
     Active Substance: SULFASALAZINE
     Indication: Arthritis
     Dosage: 500 MILLIGRAMS
  13. GABAPENTIN [Concomitant]
     Active Substance: GABAPENTIN
     Indication: Product used for unknown indication
  14. PFIZER-BIONTECH COVID-19 VACCINE [Concomitant]
     Active Substance: TOZINAMERAN
     Indication: COVID-19 immunisation
     Route: 030
     Dates: start: 20211103, end: 20211103

REACTIONS (3)
  - Injection site bruising [Recovered/Resolved]
  - Wrong technique in product usage process [Unknown]
  - Incorrect dose administered [Unknown]

NARRATIVE: CASE EVENT DATE: 20210901
